FAERS Safety Report 5835128-2 (Version None)
Quarter: 2008Q3

REPORT INFORMATION
  Report Type: 
  Country: None (occurrence: None)
  Receive Date: 20080804
  Receipt Date: 20080729
  Transmission Date: 20090109
  Serious: Yes (Life-Threatening, Hospitalization, Other)
  Sender: FDA-Public Use
  Company Number: 2008SP014472

PATIENT
  Age: 68 Year
  Sex: Female
  Weight: 67 kg

DRUGS (1)
  1. TEMOZOLOMIDE [Suspect]
     Indication: GLIOBLASTOMA MULTIFORME
     Dosage: 130 MG
     Dates: start: 20080601, end: 20080710

REACTIONS (4)
  - HAEMOGLOBIN DECREASED [None]
  - LYMPHOPENIA [None]
  - OROPHARYNGEAL PAIN [None]
  - PYREXIA [None]
